FAERS Safety Report 5941151-X (Version None)
Quarter: 2008Q4

REPORT INFORMATION
  Report Type: 
  Country: None (occurrence: None)
  Receive Date: 20081104
  Receipt Date: 20081024
  Transmission Date: 20090506
  Serious: Yes (Other)
  Sender: FDA-Public Use
  Company Number: JP-PFIZER INC-2008090517

PATIENT

DRUGS (3)
  1. HALCION [Suspect]
     Route: 048
  2. ROHYPNOL [Concomitant]
     Route: 048
  3. LENDORMIN [Concomitant]
     Route: 048

REACTIONS (2)
  - DEPRESSED LEVEL OF CONSCIOUSNESS [None]
  - OVERDOSE [None]
